FAERS Safety Report 10956059 (Version 1)
Quarter: 2015Q1

REPORT INFORMATION
  Report Type: Spontaneous
  Country: US (occurrence: None)
  Receive Date: 20150325
  Receipt Date: 20150325
  Transmission Date: 20150721
  Serious: No
  Sender: FDA-Public Use
  Company Number: None

PATIENT
  Age: 79 Year
  Sex: Male

DRUGS (2)
  1. TEMOZOLAMIDE CAPSULE 250 MG SANDOZ [Suspect]
     Active Substance: TEMOZOLOMIDE
     Indication: NEOPLASM MALIGNANT
     Dosage: BY MOUTH?250 MG, ONCE DAILY FOR 5 DAYS
     Dates: start: 20150120, end: 20150315
  2. TEMOZOLAMIDE CAPSULE 250 MG SANDOZ [Suspect]
     Active Substance: TEMOZOLOMIDE
     Indication: MALIGNANT MELANOMA
     Dosage: BY MOUTH?250 MG, ONCE DAILY FOR 5 DAYS
     Dates: start: 20150120, end: 20150315

REACTIONS (2)
  - Chest pain [None]
  - Headache [None]

NARRATIVE: CASE EVENT DATE: 20150315
